FAERS Safety Report 6538010-0 (Version None)
Quarter: 2010Q1

REPORT INFORMATION
  Report Type: 
  Country: None (occurrence: None)
  Receive Date: 20100112
  Receipt Date: 20100112
  Transmission Date: 20100710
  Serious: Yes (Life-Threatening, Hospitalization)
  Sender: FDA-Public Use
  Company Number: None

PATIENT
  Age: 43 Year
  Sex: Male
  Weight: 90.7194 kg

DRUGS (1)
  1. REMICADE [Suspect]
     Indication: CROHN'S DISEASE
     Dosage: EVERY 8 WEEKS IV DRIP
     Route: 041
     Dates: start: 20030811, end: 20081204

REACTIONS (2)
  - INTESTINAL OBSTRUCTION [None]
  - RENAL CELL CARCINOMA [None]
